FAERS Safety Report 19931056 (Version 3)
Quarter: 2021Q4

REPORT INFORMATION
  Report Type: Spontaneous
  Country: MX (occurrence: MX)
  Receive Date: 20211007
  Receipt Date: 20211104
  Transmission Date: 20220303
  Serious: Yes (Hospitalization)
  Sender: FDA-Public Use
  Company Number: MX-BIOMARINAP-MX-2021-138918

PATIENT
  Age: 7 Year
  Sex: Female
  Weight: 16.2 kg

DRUGS (2)
  1. ALDURAZYME [Suspect]
     Active Substance: LARONIDASE
     Indication: Mucopolysaccharidosis I
     Dosage: 500 ENZYME UNIT, QOW
     Route: 042
     Dates: start: 201504
  2. ALDURAZYME [Suspect]
     Active Substance: LARONIDASE
     Indication: Amenorrhoea-galactorrhoea syndrome
     Dosage: 500 UNITS, QOW
     Route: 042
     Dates: start: 201504

REACTIONS (4)
  - Hernia [Recovered/Resolved]
  - Illness [Unknown]
  - Product dose omission issue [Unknown]
  - Product use in unapproved indication [Unknown]

NARRATIVE: CASE EVENT DATE: 20201217
